FAERS Safety Report 5683535-3 (Version None)
Quarter: 2008Q1

REPORT INFORMATION
  Report Type: 
  Country: None (occurrence: None)
  Receive Date: 20080326
  Receipt Date: 20080310
  Transmission Date: 20080703
  Serious: Yes (Hospitalization)
  Sender: FDA-Public Use
  Company Number: 2008JP001253

PATIENT
  Age: 36 Year
  Sex: Female
  Weight: 61 kg

DRUGS (14)
  1. TACROLIMUS [Suspect]
     Indication: LUPUS NEPHRITIS
     Dosage: 1 MG, ORAL : 1.5 MG, ORAL
     Route: 048
     Dates: start: 20070623
  2. TACROLIMUS [Suspect]
     Indication: LUPUS NEPHRITIS
     Dosage: 1 MG, ORAL : 1.5 MG, ORAL
     Route: 048
     Dates: start: 20070825
  3. PREDNISOLONE [Concomitant]
  4. BUFFERIN [Concomitant]
  5. ALFAROL (ALFACALCIDOL) [Concomitant]
  6. RABEPRAZOLE SODIUM [Concomitant]
  7. LOXONIN (LOXOPROFEN SODIUM) [Concomitant]
  8. OPALMON (LIMAPROST) [Concomitant]
  9. CINAL (ASCORBIC ACID, CALCIUM PANTOTHENATE) [Concomitant]
  10. LOSARTAN POTASSIUM [Concomitant]
  11. LIPITOR [Concomitant]
  12. MAGLAX (MAGNESIUM OXIDE) [Concomitant]
  13. BONALON (ALENDRONIC ACID) [Concomitant]
  14. MOHRUS (KETOPROFEN) TAPE [Concomitant]

REACTIONS (1)
  - HISTIOCYTOSIS HAEMATOPHAGIC [None]
